FAERS Safety Report 9258410 (Version 2)
Quarter: 2014Q1

REPORT INFORMATION
  Report Type: Spontaneous
  Country: US (occurrence: US)
  Receive Date: 20130426
  Receipt Date: 20140110
  Transmission Date: 20141002
  Serious: Yes (Hospitalization, Disabling)
  Sender: FDA-Public Use
  Company Number: US-ASTRAZENECA-2013SE27422

PATIENT
  Age: 34 Year
  Sex: Female
  Weight: 83.9 kg

DRUGS (15)
  1. NEXIUM [Suspect]
     Indication: GASTROOESOPHAGEAL REFLUX DISEASE
     Route: 048
     Dates: start: 2009, end: 2012
  2. NEXIUM [Suspect]
     Indication: GASTROOESOPHAGEAL REFLUX DISEASE
     Route: 048
     Dates: start: 20101029
  3. PREVACID [Concomitant]
     Indication: GASTROOESOPHAGEAL REFLUX DISEASE
     Dates: start: 2011, end: 2012
  4. PEPCID [Concomitant]
     Dosage: OTC, AS NEEDED
     Dates: start: 2012, end: 2013
  5. ZANTAC [Concomitant]
     Dosage: OTC, AS NEEDED
     Dates: start: 2012, end: 2013
  6. TUMS [Concomitant]
     Indication: GASTROOESOPHAGEAL REFLUX DISEASE
     Dosage: OTC, AS NEEDED
     Dates: start: 2009
  7. PEPTO-BISMOL [Concomitant]
     Indication: GASTROOESOPHAGEAL REFLUX DISEASE
     Dosage: OTC, AS NEEDED
     Dates: start: 2009
  8. ALKA-SELTZER [Concomitant]
     Indication: GASTROOESOPHAGEAL REFLUX DISEASE
     Dosage: OTC, AS NEEDED
     Dates: start: 2009
  9. MILK OF MAGNESIA [Concomitant]
     Indication: GASTROOESOPHAGEAL REFLUX DISEASE
     Dosage: OTC, AS NEEDED
     Dates: start: 2009
  10. HUMULIN [Concomitant]
     Indication: DIABETES PROPHYLAXIS
  11. LANTIS [Concomitant]
     Indication: DIABETES PROPHYLAXIS
  12. VITAMIN D [Concomitant]
  13. METFORMIN [Concomitant]
     Indication: DIABETES MELLITUS
  14. ZOLPIDEM [Concomitant]
     Dates: start: 20101119
  15. BENAZEPRIL HCL [Concomitant]
     Dates: start: 20101103

REACTIONS (9)
  - Fall [Unknown]
  - Joint injury [Unknown]
  - Arthropathy [Unknown]
  - Osteoporosis [Unknown]
  - Spinal compression fracture [Unknown]
  - Bone disorder [Unknown]
  - Multiple fractures [Unknown]
  - Tibia fracture [Unknown]
  - Lower limb fracture [Unknown]
